FAERS Safety Report 11055324 (Version 1)
Quarter: 2015Q2

REPORT INFORMATION
  Report Type: Spontaneous
  Country: US (occurrence: US)
  Receive Date: 20150422
  Receipt Date: 20150422
  Transmission Date: 20150821
  Serious: No
  Sender: FDA-Public Use
  Company Number: US-PFIZER INC-2015131158

PATIENT
  Age: 73 Year
  Sex: Male
  Weight: 118 kg

DRUGS (3)
  1. ZITHROMAX [Suspect]
     Active Substance: AZITHROMYCIN DIHYDRATE
     Dosage: 250 MG, DAILY FOR FOUR DAYS
     Dates: start: 201503
  2. ADVIL [Suspect]
     Active Substance: IBUPROFEN
     Indication: PAIN
     Dosage: 200 MG, AS NEEDED (ONE TO TWO)
     Route: 048
  3. ZITHROMAX [Suspect]
     Active Substance: AZITHROMYCIN DIHYDRATE
     Indication: NASOPHARYNGITIS
     Dosage: 500 MG, SINGLE
     Dates: start: 201503, end: 201503

REACTIONS (2)
  - Product quality issue [Recovered/Resolved]
  - Sweat gland disorder [Recovered/Resolved]

NARRATIVE: CASE EVENT DATE: 201503
